FAERS Safety Report 10506520 (Version 1)
Quarter: 2014Q4

REPORT INFORMATION
  Report Type: Spontaneous
  Country: US (occurrence: US)
  Receive Date: 20141009
  Receipt Date: 20141009
  Transmission Date: 20150528
  Serious: No
  Sender: FDA-Public Use
  Company Number: US-BIOGENIDEC-2014BI102249

PATIENT
  Age: 47 Year
  Sex: Male

DRUGS (6)
  1. ADVIL [Concomitant]
     Active Substance: IBUPROFEN
  2. BACLOFEN. [Concomitant]
     Active Substance: BACLOFEN
  3. POTASSIUM CHLORIDE ER [Concomitant]
     Active Substance: POTASSIUM CHLORIDE
  4. TECFIDERA [Suspect]
     Active Substance: DIMETHYL FUMARATE
     Indication: MULTIPLE SCLEROSIS
     Route: 048
     Dates: start: 20131227
  5. NEURONTIN [Concomitant]
     Active Substance: GABAPENTIN
  6. ZANAFLEX [Concomitant]
     Active Substance: TIZANIDINE HYDROCHLORIDE

REACTIONS (1)
  - Enteral nutrition [Unknown]
